FAERS Safety Report 7414786-5 (Version None)
Quarter: 2011Q2

REPORT INFORMATION
  Report Type: 
  Country: None (occurrence: None)
  Receive Date: 20110414
  Receipt Date: 20110331
  Transmission Date: 20111010
  Serious: Yes (Hospitalization)
  Sender: FDA-Public Use
  Company Number: US-PFIZER INC-2011081216

PATIENT
  Age: 52 Year
  Sex: Male

DRUGS (6)
  1. FENTANYL [Suspect]
     Dosage: 150 UG/HR
  2. FENTANYL [Suspect]
     Indication: PAIN MANAGEMENT
     Dosage: 75 MCG/HR
     Route: 062
  3. OXYCODONE [Suspect]
     Indication: PRODUCT USED FOR UNKNOWN INDICATION
     Dosage: 20 MG EVERY 4 HOURS
     Route: 048
  4. IBUPROFEN [Suspect]
     Dosage: 600 MG, 4X/DAY
  5. PREDNISONE [Suspect]
     Indication: PRODUCT USED FOR UNKNOWN INDICATION
     Dosage: 20 MG, DAILY
  6. IBUPROFEN [Suspect]
     Indication: PAIN MANAGEMENT
     Dosage: 800 MG, 3X/DAY

REACTIONS (1)
  - PAIN [None]
